FAERS Safety Report 16624017 (Version 1)
Quarter: 2019Q3

REPORT INFORMATION
  Report Type: Spontaneous
  Country: US (occurrence: US)
  Receive Date: 20190724
  Receipt Date: 20190724
  Transmission Date: 20191004
  Serious: No
  Sender: FDA-Public Use
  Company Number: US-TEVA-2019-US-1083284

PATIENT
  Sex: Female

DRUGS (16)
  1. RHINOCORT AQUA [Concomitant]
     Active Substance: BUDESONIDE
  2. CELEBREX [Concomitant]
     Active Substance: CELECOXIB
  3. CLONAZEPAM. [Concomitant]
     Active Substance: CLONAZEPAM
  4. MULTIVITAMIN [Concomitant]
     Active Substance: VITAMINS
  5. OMEPRAZOLE. [Concomitant]
     Active Substance: OMEPRAZOLE
  6. RANITIDINE. [Concomitant]
     Active Substance: RANITIDINE
  7. BUSPIRONE [Concomitant]
     Active Substance: BUSPIRONE HYDROCHLORIDE
  8. CALCIUM WITH D3 [Concomitant]
  9. LEXAPRO [Concomitant]
     Active Substance: ESCITALOPRAM OXALATE
  10. BUPROPION. [Concomitant]
     Active Substance: BUPROPION
  11. CETIRIZINE [Concomitant]
     Active Substance: CETIRIZINE HYDROCHLORIDE
  12. MUCINEX [Concomitant]
     Active Substance: GUAIFENESIN
  13. WELLBUTRIX XL [Concomitant]
  14. AUSTEDO [Suspect]
     Active Substance: DEUTETRABENAZINE
     Indication: HUNTINGTON^S DISEASE
     Dosage: 18 MILLIGRAM DAILY;
     Route: 065
     Dates: start: 201704
  15. LEVOFLOXACIN. [Concomitant]
     Active Substance: LEVOFLOXACIN
  16. BUDESONIDE. [Concomitant]
     Active Substance: BUDESONIDE

REACTIONS (1)
  - Urinary tract infection [Unknown]
